FAERS Safety Report 24798168 (Version 1)
Quarter: 2025Q1

REPORT INFORMATION
  Report Type: Spontaneous
  Country: US (occurrence: US)
  Receive Date: 20250102
  Receipt Date: 20250102
  Transmission Date: 20250409
  Serious: Yes (Hospitalization)
  Sender: EMCURE PHARMACEUTICALS LTD
  Company Number: US-AVET LIFESCIENCES LTD-2024-AVET-000482

PATIENT
  Age: 58 Year
  Sex: Male
  Weight: 140 kg

DRUGS (3)
  1. PROPOFOL [Suspect]
     Active Substance: PROPOFOL
     Indication: Sedation
     Route: 042
  2. PROPOFOL [Suspect]
     Active Substance: PROPOFOL
     Route: 042
  3. PROPOFOL [Suspect]
     Active Substance: PROPOFOL
     Route: 042

REACTIONS (3)
  - Agitation [Recovering/Resolving]
  - Oxygen saturation decreased [Recovered/Resolved]
  - Muscle spasms [Recovering/Resolving]
